FAERS Safety Report 20534994 (Version 1)
Quarter: 2022Q1

REPORT INFORMATION
  Report Type: Spontaneous
  Country: BR (occurrence: BR)
  Receive Date: 20220302
  Receipt Date: 20220302
  Transmission Date: 20220424
  Serious: Yes (Hospitalization, Other)
  Sender: FDA-Public Use
  Company Number: BR-SUN PHARMACEUTICAL INDUSTRIES LTD-2022R1-328127

PATIENT
  Sex: Female

DRUGS (1)
  1. CAPECITABINE [Suspect]
     Active Substance: CAPECITABINE
     Indication: Brain cancer metastatic
     Dosage: 5 TABLETS A DAY
     Route: 048

REACTIONS (5)
  - Speech disorder [Not Recovered/Not Resolved]
  - Seizure [Unknown]
  - Dehydration [Unknown]
  - Infection [Unknown]
  - Gait inability [Not Recovered/Not Resolved]
